FAERS Safety Report 4502476-8 (Version None)
Quarter: 2004Q4

REPORT INFORMATION
  Report Type: 
  Country: None (occurrence: None)
  Receive Date: 20041112
  Receipt Date: 20041026
  Transmission Date: 20050328
  Serious: No
  Sender: FDA-Public Use
  Company Number: SGB1-2004-00394

PATIENT
  Sex: 0

DRUGS (1)
  1. AGRYLIN [Suspect]
     Indication: THROMBOCYTHAEMIA

REACTIONS (1)
  - ACUTE MYELOID LEUKAEMIA [None]
